FAERS Safety Report 23448821 (Version 2)
Quarter: 2024Q1

REPORT INFORMATION
  Report Type: Report from Study
  Country: CA (occurrence: CA)
  Receive Date: 20240128
  Receipt Date: 20240229
  Transmission Date: 20240410
  Serious: Yes (Hospitalization)
  Sender: FDA-Public Use
  Company Number: CA-MYLANLABS-2023M1104449

PATIENT

DRUGS (2)
  1. OGIVRI [Suspect]
     Active Substance: TRASTUZUMAB-DKST
     Indication: Endometrial cancer stage IV
     Dosage: 6 MG/KG, Q3W
     Route: 042
     Dates: start: 20230628
  2. OGIVRI [Suspect]
     Active Substance: TRASTUZUMAB-DKST
     Indication: Human epidermal growth factor receptor positive
     Dosage: UNK
     Route: 065
     Dates: start: 20231102

REACTIONS (2)
  - Hospitalisation [Recovered/Resolved]
  - Product dose omission issue [Unknown]

NARRATIVE: CASE EVENT DATE: 20230921
